FAERS Safety Report 5013470-5 (Version None)
Quarter: 2006Q2

REPORT INFORMATION
  Report Type: 
  Country: None (occurrence: None)
  Receive Date: 20060525
  Receipt Date: 20060525
  Transmission Date: 20061013
  Serious: Yes (Hospitalization)
  Sender: FDA-Public Use
  Company Number: None

PATIENT
  Age: 50 Year
  Sex: Female

DRUGS (1)
  1. DOFEILIDE     0.5 MG [Suspect]
     Indication: ATRIAL FIBRILLATION
     Dosage: 0.5 MG  BID   PO
     Route: 048
     Dates: start: 20060405, end: 20060407

REACTIONS (1)
  - TORSADE DE POINTES [None]
